FAERS Safety Report 8437327-2 (Version None)
Quarter: 2012Q2

REPORT INFORMATION
  Report Type: 
  Country: None (occurrence: None)
  Receive Date: 20120614
  Receipt Date: 20120309
  Transmission Date: 20120825
  Serious: No
  Sender: FDA-Public Use
  Company Number: US-AMGEN-USASP2012015433

PATIENT
  Age: 60 Year
  Sex: Female

DRUGS (3)
  1. FLUOXETINE [Concomitant]
  2. PROLIA [Suspect]
     Indication: OSTEOPOROSIS POSTMENOPAUSAL
     Dosage: 60 MG, Q6MO
     Dates: start: 20120131
  3. LIPITOR [Concomitant]

REACTIONS (5)
  - GASTROENTERITIS VIRAL [None]
  - FATIGUE [None]
  - NAUSEA [None]
  - HYPERSOMNIA [None]
  - VOMITING [None]
